FAERS Safety Report 9463660 (Version 2)
Quarter: 2013Q4

REPORT INFORMATION
  Report Type: Report from Study
  Country: AR (occurrence: AR)
  Receive Date: 20130819
  Receipt Date: 20131029
  Transmission Date: 20140711
  Serious: Yes (Hospitalization)
  Sender: FDA-Public Use
  Company Number: PHHY2013AR088799

PATIENT
  Sex: Female

DRUGS (1)
  1. DIOVAN [Suspect]
     Indication: BLOOD PRESSURE ABNORMAL
     Dosage: 2 DF (160 MG), DAILY
     Route: 048
     Dates: start: 201305

REACTIONS (2)
  - Cholelithiasis [Recovered/Resolved]
  - Malaise [Unknown]
